FAERS Safety Report 5310531-8 (Version None)
Quarter: 2007Q2

REPORT INFORMATION
  Report Type: 
  Country: None (occurrence: None)
  Receive Date: 20070427
  Receipt Date: 20070417
  Transmission Date: 20071010
  Serious: Yes (Life-Threatening, Other)
  Sender: FDA-Public Use
  Company Number: GB-MERCK-0704GBR00057

PATIENT
  Age: 79 Year
  Sex: Male
  Weight: 85 kg

DRUGS (5)
  1. FOSAMAX [Suspect]
     Indication: OSTEOPOROSIS
     Route: 048
     Dates: start: 20070226, end: 20070405
  2. DICLOFENAC [Concomitant]
     Route: 065
     Dates: start: 20070226
  3. MISOPROSTOL [Concomitant]
     Route: 065
     Dates: start: 20060726
  4. ACETAMINOPHEN [Concomitant]
     Route: 065
     Dates: start: 20060726
  5. PENICILLIN V [Concomitant]
     Route: 065
     Dates: start: 20070320

REACTIONS (1)
  - CONFUSIONAL STATE [None]
